FAERS Safety Report 8796453 (Version 2)
Quarter: 2012Q4

REPORT INFORMATION
  Report Type: 
  Country: US (occurrence: US)
  Receive Date: 20120919
  Receipt Date: 20121218
  Transmission Date: 20130627
  Serious: Yes (Other)
  Sender: FDA-Public Use
  Company Number: US-MPIJNJ-2012-06455

PATIENT
  Age: 56 Year
  Sex: Male

DRUGS (2)
  1. VELCADE [Suspect]
     Indication: MULTIPLE MYELOMA
     Dosage: 2.6 mg, 1/week
     Route: 058
     Dates: start: 20120710, end: 20120713
  2. VELCADE [Suspect]
     Dosage: 2.6 mg, 1/week
     Route: 042

REACTIONS (1)
  - Injection site necrosis [Recovered/Resolved]
